FAERS Safety Report 6962290-0 (Version None)
Quarter: 2010Q3

REPORT INFORMATION
  Report Type: 
  Country: None (occurrence: None)
  Receive Date: 20100823
  Receipt Date: 20100716
  Transmission Date: 20110219
  Serious: No
  Sender: FDA-Public Use
  Company Number: 015907

PATIENT
  Sex: Male

DRUGS (1)
  1. CIMZIA [Suspect]
     Dosage: 400 MG MONTHLY DOSE (PATIENT RECEIVED ONLY HALF DOSE ON  16/JUL/2010) SUBCUTANEOUS
     Route: 058
     Dates: start: 20100716

REACTIONS (2)
  - PRODUCT QUALITY ISSUE [None]
  - VESSEL PUNCTURE SITE HAEMORRHAGE [None]
